FAERS Safety Report 5005725-5 (Version None)
Quarter: 2006Q2

REPORT INFORMATION
  Report Type: 
  Country: None (occurrence: None)
  Receive Date: 20060518
  Receipt Date: 20060512
  Transmission Date: 20061013
  Serious: Yes (Hospitalization, Other)
  Sender: FDA-Public Use
  Company Number: AT-JNJFOC-20060503320

PATIENT
  Sex: Female
  Weight: 43 kg

DRUGS (11)
  1. RISPERDAL [Suspect]
     Indication: DEMENTIA
  2. BURONIL [Concomitant]
  3. DOMINAL [Concomitant]
  4. AKINETON [Concomitant]
  5. AXURA [Concomitant]
  6. NEUROTOP [Concomitant]
  7. DEPAKENE [Concomitant]
  8. THYREX [Concomitant]
  9. MEXALEN [Concomitant]
  10. PANTALOC [Concomitant]
  11. LOVENOX [Concomitant]

REACTIONS (1)
  - FALL [None]
